FAERS Safety Report 7190474-8 (Version None)
Quarter: 2010Q4

REPORT INFORMATION
  Report Type: 
  Country: None (occurrence: None)
  Receive Date: 20101223
  Receipt Date: 20100823
  Transmission Date: 20110411
  Serious: No
  Sender: FDA-Public Use
  Company Number: ES-SHIRE-SPV1-2010-00643

PATIENT
  Age: 13 Year
  Sex: Male

DRUGS (5)
  1. ELAPRASE [Suspect]
     Indication: MUCOPOLYSACCHARIDOSIS II
     Route: 041
     Dates: start: 20100101
  2. POLARAMINE                         /00043702/ [Concomitant]
     Indication: PREMEDICATION
     Dates: start: 20100404
  3. RANITIDINE                         /00550802/ [Concomitant]
     Indication: PREMEDICATION
     Dates: start: 20100404
  4. PARACETAMOL [Concomitant]
     Indication: PREMEDICATION
     Dates: start: 20100404
  5. CORTICOSTEROID NOS [Concomitant]
     Indication: PREMEDICATION
     Dates: start: 20100409

REACTIONS (4)
  - BRONCHOSPASM [None]
  - HYPOTENSION [None]
  - INFUSION RELATED REACTION [None]
  - PYREXIA [None]
